FAERS Safety Report 19243767 (Version 2)
Quarter: 2021Q2

REPORT INFORMATION
  Report Type: Spontaneous
  Country: BE (occurrence: BE)
  Receive Date: 20210511
  Receipt Date: 20210607
  Transmission Date: 20210717
  Serious: Yes (Other)
  Sender: FDA-Public Use
  Company Number: NVSC2021BE098296

PATIENT
  Sex: Male

DRUGS (2)
  1. BEOVU [Suspect]
     Active Substance: BROLUCIZUMAB-DBLL
     Dosage: 1 DOSE AS RECHARGE, STANDARD DOSE
     Route: 065
     Dates: start: 20210422
  2. BEOVU [Suspect]
     Active Substance: BROLUCIZUMAB-DBLL
     Indication: PRODUCT USED FOR UNKNOWN INDICATION
     Dosage: UNK
     Route: 065
     Dates: start: 20201220

REACTIONS (5)
  - Off label use [Unknown]
  - Vision blurred [Unknown]
  - Eye inflammation [Recovered/Resolved]
  - Vitreous floaters [Unknown]
  - Vitritis [Unknown]

NARRATIVE: CASE EVENT DATE: 20210424
